FAERS Safety Report 4376261-4 (Version None)
Quarter: 2004Q2

REPORT INFORMATION
  Report Type: 
  Country: None (occurrence: None)
  Receive Date: 20040611
  Receipt Date: 20030130
  Transmission Date: 20050107
  Serious: Yes (Disabling)
  Sender: FDA-Public Use
  Company Number: US-MERCK-0302USA00012

PATIENT
  Age: 30 Year
  Sex: Female
  Weight: 57 kg

DRUGS (6)
  1. [THERAPY UNSPECIFIED] [Concomitant]
     Route: 065
     Dates: start: 20010405, end: 20010826
  2. TYLENOL [Concomitant]
     Route: 065
  3. DARVOCET-N 100 [Concomitant]
     Route: 065
     Dates: start: 20030823
  4. SOMA [Concomitant]
     Route: 065
  5. VIOXX [Suspect]
     Indication: PAIN IN EXTREMITY
     Route: 048
     Dates: start: 20010824, end: 20010829
  6. VIOXX [Suspect]
     Indication: ARTHRALGIA
     Route: 048
     Dates: start: 20010824, end: 20010829

REACTIONS (21)
  - ACNE [None]
  - ANXIETY [None]
  - CHEST PAIN [None]
  - DIABETES MELLITUS [None]
  - DYSURIA [None]
  - GASTRITIS [None]
  - GASTROOESOPHAGEAL REFLUX DISEASE [None]
  - HAEMANGIOMA [None]
  - HEMIPARESIS [None]
  - HYPOAESTHESIA [None]
  - INJURY [None]
  - INTERVERTEBRAL DISC DEGENERATION [None]
  - IRRITABLE BOWEL SYNDROME [None]
  - JOINT DISLOCATION [None]
  - JOINT EFFUSION [None]
  - JOINT RANGE OF MOTION DECREASED [None]
  - JOINT SPRAIN [None]
  - LIGAMENT SPRAIN [None]
  - LIPOMA [None]
  - SPONDYLOSIS [None]
  - SYNOVIAL DISORDER [None]
